FAERS Safety Report 23651332 (Version 1)
Quarter: 2024Q1

REPORT INFORMATION
  Report Type: Spontaneous
  Country: US (occurrence: US)
  Receive Date: 20240320
  Receipt Date: 20240320
  Transmission Date: 20240410
  Serious: Yes (Other)
  Sender: FDA-Public Use
  Company Number: US-BRISTOL-MYERS SQUIBB COMPANY-2024-042174

PATIENT
  Age: 73 Year
  Sex: Male

DRUGS (1)
  1. POMALYST [Suspect]
     Active Substance: POMALIDOMIDE
     Indication: Plasma cell myeloma
     Dosage: TAKE 1CAPSULE BY MOUTH EVERY DAY FOR 21 DAYS THEN 7 DAYS OFF
     Route: 048

REACTIONS (4)
  - Swelling [Not Recovered/Not Resolved]
  - Brain fog [Not Recovered/Not Resolved]
  - Blood test abnormal [Not Recovered/Not Resolved]
  - Mobility decreased [Not Recovered/Not Resolved]
